FAERS Safety Report 25166308 (Version 7)
Quarter: 2025Q4

REPORT INFORMATION
  Report Type: Report from Study
  Country: EU (occurrence: EU)
  Receive Date: 20250407
  Receipt Date: 20251016
  Transmission Date: 20260118
  Serious: Yes (Hospitalization)
  Sender: ABBVIE
  Company Number: EU-ABBVIE-6214509

PATIENT
  Age: 67 Year
  Sex: Female

DRUGS (7)
  1. FOSCARBIDOPA\FOSLEVODOPA [Suspect]
     Active Substance: FOSCARBIDOPA\FOSLEVODOPA
     Indication: Parkinson^s disease
     Dosage: DOSAGE: SD:0.10 ML, CRN: 0.25 ML/H CR:0.33 ML/H CRH:0.35 ML/H ED:0.20 ML,?LAST ADMIN DATE: 2025
     Route: 058
     Dates: start: 20250319
  2. FOSCARBIDOPA\FOSLEVODOPA [Suspect]
     Active Substance: FOSCARBIDOPA\FOSLEVODOPA
     Dosage: DOSAGE: CRN 0.26ML/H, CR 0.40ML/H, CRH 0.43ML/H, ED 0.25ML/?FIRST AND LAST ADMIN: 2025
     Route: 058
  3. FOSCARBIDOPA\FOSLEVODOPA [Suspect]
     Active Substance: FOSCARBIDOPA\FOSLEVODOPA
     Dosage: DOSAGE: CRN: 0.18 ML/H, CR: 0.38 ML/H, CRH: 0.39 ML/H, ED: 0.25 ML
     Route: 058
     Dates: start: 2025, end: 2025
  4. FOSCARBIDOPA\FOSLEVODOPA [Suspect]
     Active Substance: FOSCARBIDOPA\FOSLEVODOPA
     Dosage: DOSAGE: CRN: 0.18 ML/H, CR: 0.37 ML/H, CRH: 0.39 ML/H, ED: 0.20 ML (BLOCKING TIME 05:00 H)
     Route: 058
     Dates: start: 2025, end: 2025
  5. FOSCARBIDOPA\FOSLEVODOPA [Suspect]
     Active Substance: FOSCARBIDOPA\FOSLEVODOPA
     Dosage: DOSAGE: : CRN: 0.25 ML/H, CR: 0.33 ML/H, ED: 0.20 ML
     Route: 058
     Dates: start: 2025, end: 2025
  6. FOSCARBIDOPA\FOSLEVODOPA [Suspect]
     Active Substance: FOSCARBIDOPA\FOSLEVODOPA
     Dosage: DOSAGE: SD: 0.10 ML CR 0.45 M/H, CRN 0.41 ML/H, CRH 0.47 ML/H, ED 0.25 ML/
     Route: 058
     Dates: start: 2025, end: 2025
  7. FOSCARBIDOPA\FOSLEVODOPA [Suspect]
     Active Substance: FOSCARBIDOPA\FOSLEVODOPA
     Dosage: DOSAGE: CRN: 0.51 ML/H, CR: 0.53 ML/H, CRH: 0.55 ML/H, ED: 0.25 ML
     Route: 058
     Dates: start: 2025

REACTIONS (6)
  - Dyskinesia [Not Recovered/Not Resolved]
  - Inguinal hernia [Not Recovered/Not Resolved]
  - On and off phenomenon [Not Recovered/Not Resolved]
  - Hyperkinesia [Not Recovered/Not Resolved]
  - Delusion [Not Recovered/Not Resolved]
  - Weight decreased [Not Recovered/Not Resolved]

NARRATIVE: CASE EVENT DATE: 20250101
